FAERS Safety Report 5371528-5 (Version None)
Quarter: 2007Q2

REPORT INFORMATION
  Report Type: 
  Country: None (occurrence: None)
  Receive Date: 20070625
  Receipt Date: 20070615
  Transmission Date: 20071010
  Serious: Yes (Hospitalization)
  Sender: FDA-Public Use
  Company Number: 2007BI012982

PATIENT

DRUGS (2)
  1. ZEVALIN [Suspect]
     Indication: DRUG USE FOR UNKNOWN INDICATION
     Dosage: ; 1X;IV
     Route: 042
     Dates: start: 20070515, end: 20070515
  2. RITUXIMAB [Concomitant]

REACTIONS (1)
  - CARDIAC FAILURE CONGESTIVE [None]
